FAERS Safety Report 7619025-8 (Version None)
Quarter: 2011Q3

REPORT INFORMATION
  Report Type: 
  Country: None (occurrence: None)
  Receive Date: 20110718
  Receipt Date: 20110708
  Transmission Date: 20111222
  Serious: Yes (Hospitalization, Other)
  Sender: FDA-Public Use
  Company Number: US-ASTRAZENECA-2011SE40811

PATIENT
  Sex: Male

DRUGS (4)
  1. SEROQUEL [Suspect]
     Indication: BIPOLAR DISORDER
     Route: 048
     Dates: start: 20060101
  2. ZOLOFT [Concomitant]
  3. VITAMIN B-12 [Concomitant]
  4. ASPIRIN [Concomitant]

REACTIONS (8)
  - ACCIDENT [None]
  - BLOOD CHOLESTEROL INCREASED [None]
  - PROSTATIC OPERATION [None]
  - LIMB INJURY [None]
  - PAIN [None]
  - PROSTATE CANCER [None]
  - JOINT INJURY [None]
  - GASTROOESOPHAGEAL REFLUX DISEASE [None]
